FAERS Safety Report 8487688 (Version 2)
Quarter: 2012Q4

REPORT INFORMATION
  Report Type: Report from Study
  Country: DE (occurrence: DE)
  Receive Date: 20120402
  Receipt Date: 20120920
  Transmission Date: 20130627
  Serious: Yes (Hospitalization)
  Sender: FDA-Public Use
  Company Number: DE-PFIZER INC-2012079150

PATIENT
  Age: 36 Year
  Sex: Female

DRUGS (21)
  1. SOMATROPIN [Suspect]
     Indication: HYPOPITUITARISM
     Dosage: 0.3 mg, 1x/day
     Dates: start: 19951110, end: 19960221
  2. SOMATROPIN [Suspect]
     Dosage: 0.5 mg, 1x/day
     Dates: start: 19960222, end: 19970403
  3. SOMATROPIN [Suspect]
     Dosage: 0.53 mg, 1x/day
     Dates: start: 19970404, end: 19980420
  4. SOMATROPIN [Suspect]
     Dosage: 0.67 mg, 1x/day
     Dates: start: 19980421, end: 19981001
  5. SOMATROPIN [Suspect]
     Dosage: 0.8 mg, 1x/day
     Dates: start: 19981002, end: 20050816
  6. SOMATROPIN [Suspect]
     Dosage: 0.6 mg, 1x/day
     Dates: start: 20050817, end: 20090209
  7. SOMATROPIN [Suspect]
     Dosage: 0.3 mg, 1x/day
     Dates: start: 20090210
  8. L-THYROXIN [Concomitant]
     Indication: BLOOD THYROID STIMULATING HORMONE DECREASED
     Dosage: 150 ug, 1x/day
  9. DHEA [Concomitant]
     Indication: BLOOD CORTICOTROPHIN DECREASED
     Dosage: 25 mg, 1x/day
     Dates: start: 20050817, end: 20070723
  10. DHEA [Concomitant]
     Dosage: 50 mg, 1x/day
     Dates: start: 20070724
  11. LEVOTHYROXINE [Concomitant]
     Indication: BLOOD THYROID STIMULATING HORMONE DECREASED
     Dosage: 150 ug, 1x/day
     Dates: start: 19870115, end: 20050816
  12. LEVOTHYROXINE [Concomitant]
     Dosage: 125 ug, 1x/day
     Dates: start: 20050817, end: 20090413
  13. HYDROCORTISONE [Concomitant]
     Indication: BLOOD CORTICOTROPHIN DECREASED
     Dosage: 10 mg, 1x/day
     Dates: start: 19870115, end: 20010914
  14. HYDROCORTISONE [Concomitant]
     Dosage: 15 mg, 1x/day
     Dates: start: 20010915, end: 20030630
  15. HYDROCORTISONE [Concomitant]
     Dosage: 10 mg, 1x/day
     Dates: start: 20030701, end: 20050816
  16. HYDROCORTISONE [Concomitant]
     Dosage: 20 mg, 1x/day
     Dates: start: 20050817
  17. NORETHISTERONE ACETATE [Concomitant]
     Indication: BLOOD LUTEINISING HORMONE DECREASED
     Dosage: 1 mg, UNK
     Dates: start: 19920615
  18. NORETHISTERONE ACETATE [Concomitant]
     Indication: BLOOD FOLLICLE STIMULATING HORMONE DECREASED
  19. ESTRADIOL [Concomitant]
     Indication: BLOOD LUTEINISING HORMONE DECREASED
     Dosage: 2 mg, UNK
     Dates: start: 19920615
  20. ESTRADIOL [Concomitant]
     Indication: BLOOD FOLLICLE STIMULATING HORMONE DECREASED
  21. DESMOPRESSIN [Concomitant]
     Indication: BLOOD ANTIDIURETIC HORMONE DECREASED
     Dosage: 0.1 ml, 1x/day
     Dates: start: 19870115

REACTIONS (1)
  - Ligament sprain [Unknown]
